FAERS Safety Report 14914144 (Version 1)
Quarter: 2018Q2

REPORT INFORMATION
  Report Type: Spontaneous
  Country: US (occurrence: US)
  Receive Date: 20180518
  Receipt Date: 20180518
  Transmission Date: 20180711
  Serious: Yes (Other)
  Sender: FDA-Public Use
  Company Number: US-TEVA-2018-US-892407

PATIENT
  Age: 82 Year
  Sex: Male

DRUGS (1)
  1. QVAR [Suspect]
     Active Substance: BECLOMETHASONE DIPROPIONATE
     Indication: IDIOPATHIC PULMONARY FIBROSIS
     Dosage: 2 PUFFS TWICE A DAY
     Route: 065
     Dates: start: 201711

REACTIONS (5)
  - Cough [Unknown]
  - Idiopathic pulmonary fibrosis [Unknown]
  - Product use in unapproved indication [Unknown]
  - Drug dose omission [Unknown]
  - Condition aggravated [Unknown]
